FAERS Safety Report 10657451 (Version 1)
Quarter: 2014Q4

REPORT INFORMATION
  Report Type: Report from Study
  Country: NL (occurrence: NL)
  Receive Date: 20141217
  Receipt Date: 20141217
  Transmission Date: 20150529
  Serious: Yes (Death)
  Sender: FDA-Public Use
  Company Number: NL-AMGEN-NLDSL2014097939

PATIENT
  Age: 71 Year
  Sex: Male

DRUGS (1)
  1. XGEVA [Suspect]
     Active Substance: DENOSUMAB
     Indication: PRODUCT USED FOR UNKNOWN INDICATION
     Dosage: UNK UNK, Q4WK
     Route: 058

REACTIONS (1)
  - Death [Fatal]
